FAERS Safety Report 12973301 (Version 6)
Quarter: 2017Q2

REPORT INFORMATION
  Report Type: Spontaneous
  Country: US (occurrence: US)
  Receive Date: 20161124
  Receipt Date: 20170421
  Transmission Date: 20170830
  Serious: Yes (Hospitalization, Other)
  Sender: FDA-Public Use
  Company Number: US-009507513-1611USA007749

PATIENT
  Age: 65 Year
  Sex: Male
  Weight: 87.98 kg

DRUGS (3)
  1. TICE BCG [Suspect]
     Active Substance: BACILLUS CALMETTE-GUERIN SUBSTRAIN TICE LIVE ANTIGEN
     Dosage: 81 MG, ONCE A WEEK
     Route: 043
     Dates: start: 20161107, end: 20161107
  2. TICE BCG [Suspect]
     Active Substance: BACILLUS CALMETTE-GUERIN SUBSTRAIN TICE LIVE ANTIGEN
     Indication: BLADDER CANCER
     Dosage: 81 MG, ONCE A WEEK
     Route: 043
     Dates: start: 20161010, end: 20161010
  3. TICE BCG [Suspect]
     Active Substance: BACILLUS CALMETTE-GUERIN SUBSTRAIN TICE LIVE ANTIGEN
     Dosage: 81 MG, ONCE A WEEK
     Route: 043
     Dates: start: 20161017, end: 20161017

REACTIONS (2)
  - Escherichia infection [Recovering/Resolving]
  - Urosepsis [Recovered/Resolved]

NARRATIVE: CASE EVENT DATE: 201611
